FAERS Safety Report 13241074 (Version 1)
Quarter: 2017Q1

REPORT INFORMATION
  Report Type: Report from Study
  Country: BR (occurrence: BR)
  Receive Date: 20170216
  Receipt Date: 20170216
  Transmission Date: 20170428
  Serious: Yes (Death, Other)
  Sender: FDA-Public Use
  Company Number: BR-TAKEDA-2017TUS003553

PATIENT
  Sex: Male

DRUGS (2)
  1. TECTA [Concomitant]
     Active Substance: PANTOPRAZOLE MAGNESIUM
     Indication: HIATUS HERNIA
     Dosage: UNK
     Route: 048
     Dates: start: 2015
  2. VEDOLIZUMAB [Suspect]
     Active Substance: VEDOLIZUMAB
     Indication: CROHN^S DISEASE
     Dosage: 300 MG, UNK
     Route: 042
     Dates: start: 20161019

REACTIONS (6)
  - Metastases to bone [Fatal]
  - Intestinal obstruction [Fatal]
  - Metastases to peritoneum [Fatal]
  - Acute kidney injury [Fatal]
  - Colon neoplasm [Fatal]
  - Neuroendocrine carcinoma of the skin [Fatal]
